FAERS Safety Report 4831650-6 (Version None)
Quarter: 2005Q4

REPORT INFORMATION
  Report Type: 
  Country: None (occurrence: None)
  Receive Date: 20051116
  Receipt Date: 20051103
  Transmission Date: 20060501
  Serious: Yes (Other)
  Sender: FDA-Public Use
  Company Number: 2005081014

PATIENT
  Age: 60 Year
  Sex: Female
  Weight: 77.1115 kg

DRUGS (4)
  1. NEURONTIN [Suspect]
     Indication: INTERVERTEBRAL DISC PROTRUSION
     Dosage: UNKNOWN (300 MG, UNKNOWN), UNKNOWN
     Route: 065
  2. ZANTAC [Suspect]
     Indication: GASTROINTESTINAL DISORDER
     Dosage: 75 MG (75 MG, 1 IN 1 D), UNKNOWN
     Route: 065
     Dates: start: 20050519
  3. TYLENOL [Concomitant]
  4. COLACE (DOCUSATE SODIUM) [Concomitant]

REACTIONS (7)
  - ABDOMINAL DISCOMFORT [None]
  - DRUG INTERACTION [None]
  - DRUG PRESCRIBING ERROR [None]
  - FATIGUE [None]
  - FEELING ABNORMAL [None]
  - HERPES SIMPLEX [None]
  - WRONG TECHNIQUE IN DRUG USAGE PROCESS [None]
